FAERS Safety Report 24735618 (Version 8)
Quarter: 2025Q4

REPORT INFORMATION
  Report Type: Spontaneous
  Country: US (occurrence: US)
  Receive Date: 20241216
  Receipt Date: 20251217
  Transmission Date: 20260119
  Serious: No
  Sender: ROCHE
  Company Number: US-ROCHE-10000154060

PATIENT
  Age: 34 Year
  Sex: Female

DRUGS (15)
  1. XOLAIR PFS [Suspect]
     Active Substance: OMALIZUMAB
     Indication: Idiopathic urticaria
     Dosage: STRENGTH: 150 MG/ML, EVERY 2 WEEKS
     Route: 058
     Dates: start: 202108
  2. XOLAIR PFS [Suspect]
     Active Substance: OMALIZUMAB
     Dosage: STRENGTH: 150 MG/ML, EVERY 2 WEEKS
     Route: 058
     Dates: start: 202208
  3. XOLAIR PFS [Suspect]
     Active Substance: OMALIZUMAB
     Dosage: STRENGTH: 150 MG/ML, EVERY 2 WEEKS
     Route: 058
     Dates: start: 202108
  4. GRANISETRON [Concomitant]
     Active Substance: GRANISETRON
  5. HCL [Concomitant]
  6. ACETAMINOPHEN [Concomitant]
     Active Substance: ACETAMINOPHEN
  7. CINRYZE [Concomitant]
     Active Substance: HUMAN C1-ESTERASE INHIBITOR
  8. LEUCOVORIN CALC SDV [Concomitant]
  9. FAMOTIDINE [Concomitant]
     Active Substance: FAMOTIDINE
  10. PROMETHAZINE HYDROCHLORIDE [Concomitant]
     Active Substance: PROMETHAZINE HYDROCHLORIDE
  11. SODIUM CHLORIDE [Concomitant]
     Active Substance: SODIUM CHLORIDE
  12. DIPHENHYDRAMINE [Concomitant]
     Active Substance: DIPHENHYDRAMINE
  13. HEPARIN [Concomitant]
     Active Substance: HEPARIN SODIUM
  14. CARNITOR [Concomitant]
     Active Substance: LEVOCARNITINE
  15. EPINEPHRINE [Concomitant]
     Active Substance: EPINEPHRINE

REACTIONS (4)
  - Ill-defined disorder [Recovered/Resolved]
  - Gastrointestinal disorder [Recovered/Resolved]
  - Off label use [Unknown]
  - Off label use [Unknown]

NARRATIVE: CASE EVENT DATE: 20241120
